FAERS Safety Report 8818309 (Version 1)
Quarter: 2012Q4

REPORT INFORMATION
  Report Type: 
  Country: NO (occurrence: NO)
  Receive Date: 20121001
  Receipt Date: 20121001
  Transmission Date: 20130627
  Serious: Yes (Other)
  Sender: FDA-Public Use
  Company Number: NO-MUTUAL PHARMACEUTICAL COMPANY, INC.-MTCD20120268

PATIENT
  Age: 14 None
  Sex: Male

DRUGS (8)
  1. AFIPRAN (METOCLOPRAMIDE) [Suspect]
     Indication: DRUG USE FOR UNKNOWN INDICATION
     Route: 048
     Dates: start: 20120906, end: 20120909
  2. FLAGYL (METRONIDAZOLE BENZOATE) [Concomitant]
     Indication: INFECTION PROPHYLAXIS
     Route: 065
  3. BACTRIM [Concomitant]
     Indication: DRUG USE FOR UNKNOWN INDICATION
     Route: 065
  4. MERONEM [Concomitant]
     Indication: INFECTION PROPHYLAXIS
     Route: 065
  5. PARAFINEMULSJON NAF (PARAFFIN) [Concomitant]
     Indication: DRUG USE FOR UNKNOWN INDICATION
     Route: 065
  6. MAGNESIUM (DIFFERENT SALTS IN COMBINATION) [Concomitant]
     Indication: DRUG USE FOR UNKNOWN INDICATION
     Route: 065
  7. PARACET (PARACETAMOL) [Concomitant]
     Indication: DRUG USE FOR UNKNOWN INDICATION
     Route: 065
  8. KALEORID (POTASSIUM CHLORIDE) [Concomitant]
     Indication: DRUG USE FOR UNKNOWN INDICATION
     Route: 065

REACTIONS (7)
  - Disturbance in attention [None]
  - Extrapyramidal disorder [None]
  - Dystonia [None]
  - Anxiety [None]
  - Tremor [None]
  - Trismus [None]
  - Overdose [None]
